FAERS Safety Report 13930684 (Version 1)
Quarter: 2017Q3

REPORT INFORMATION
  Report Type: Spontaneous
  Country: GB (occurrence: GB)
  Receive Date: 20170901
  Receipt Date: 20170901
  Transmission Date: 20171127
  Serious: Yes (Other)
  Sender: FDA-Public Use
  Company Number: GB-BAXTER-2017BAX031125

PATIENT
  Age: 58 Year
  Sex: Male

DRUGS (11)
  1. DARUNAVIR [Concomitant]
     Active Substance: DARUNAVIR
     Indication: HIV INFECTION
     Route: 065
     Dates: start: 2012
  2. LIPOSOMAL AMPHOTERICIN B [Concomitant]
     Active Substance: AMPHOTERICIN B
     Indication: PNEUMONIA CRYPTOCOCCAL
     Route: 065
     Dates: start: 2013
  3. RALTEGRAVIR. [Concomitant]
     Active Substance: RALTEGRAVIR
     Indication: HIV INFECTION
     Route: 065
     Dates: start: 2013
  4. TRUVADA [Concomitant]
     Active Substance: EMTRICITABINE\TENOFOVIR DISOPROXIL FUMARATE
     Indication: HIV INFECTION
     Route: 065
     Dates: start: 2012
  5. FLUCONAZOLE. [Concomitant]
     Active Substance: FLUCONAZOLE
     Indication: PNEUMONIA CRYPTOCOCCAL
     Route: 048
     Dates: start: 2013
  6. FLUCYTOSINE. [Concomitant]
     Active Substance: FLUCYTOSINE
     Indication: PNEUMONIA CRYPTOCOCCAL
     Route: 065
     Dates: start: 2013
  7. DEXAMETHASONE. [Suspect]
     Active Substance: DEXAMETHASONE
     Indication: AMYLOIDOSIS
     Dosage: 21-DAY CYCLES (VCD REGIMEN)
     Route: 065
     Dates: start: 201307, end: 201309
  8. RITONAVIR. [Concomitant]
     Active Substance: RITONAVIR
     Indication: HIV INFECTION
     Route: 065
     Dates: start: 2012
  9. KIVEXA [Concomitant]
     Active Substance: ABACAVIR SULFATE\LAMIVUDINE
     Indication: HIV INFECTION
     Route: 065
     Dates: start: 2013
  10. CYCLOPHOSPHAMIDE INJECTION 1G [Suspect]
     Active Substance: CYCLOPHOSPHAMIDE
     Indication: AMYLOIDOSIS
     Dosage: 21-DAY CYCLES (VCD REGIMEN)
     Route: 065
     Dates: start: 201307, end: 201309
  11. BORTEZOMIB [Suspect]
     Active Substance: BORTEZOMIB
     Indication: AMYLOIDOSIS
     Dosage: 21-DAY CYCLES (VCD REGIMEN)
     Route: 065
     Dates: start: 201307, end: 201309

REACTIONS (1)
  - Autonomic neuropathy [Recovering/Resolving]

NARRATIVE: CASE EVENT DATE: 201309
